FAERS Safety Report 7864459-X (Version None)
Quarter: 2011Q4

REPORT INFORMATION
  Report Type: 
  Country: None (occurrence: None)
  Receive Date: 20111028
  Receipt Date: 20111018
  Transmission Date: 20120403
  Serious: Yes (Other)
  Sender: FDA-Public Use
  Company Number: US-JNJFOC-20110906866

PATIENT
  Sex: Female
  Weight: 1.04 kg

DRUGS (1)
  1. REMICADE [Suspect]
     Indication: MATERNAL EXPOSURE DURING PREGNANCY
     Route: 064

REACTIONS (2)
  - PREMATURE BABY [None]
  - SMALL FOR DATES BABY [None]
